FAERS Safety Report 25451058 (Version 1)
Quarter: 2025Q2

REPORT INFORMATION
  Report Type: Spontaneous
  Country: US (occurrence: US)
  Receive Date: 20250618
  Receipt Date: 20250618
  Transmission Date: 20250717
  Serious: No
  Sender: INTERCEPT PHARMACEUTICALS
  Company Number: US-INTERCEPT-PM2025000251

PATIENT
  Age: 66 Year
  Sex: Female
  Weight: 68.027 kg

DRUGS (3)
  1. OCALIVA [Suspect]
     Active Substance: OBETICHOLIC ACID
     Indication: Primary biliary cholangitis
     Dosage: 5 MILLIGRAM, QD
     Route: 048
     Dates: start: 20231031, end: 20250127
  2. OCALIVA [Suspect]
     Active Substance: OBETICHOLIC ACID
     Dosage: 5 MILLIGRAM, QD
     Route: 048
     Dates: start: 2025, end: 2025
  3. URSODIOL [Concomitant]
     Active Substance: URSODIOL

REACTIONS (2)
  - Drug ineffective [Unknown]
  - Therapy interrupted [Recovered/Resolved]

NARRATIVE: CASE EVENT DATE: 20250127
